FAERS Safety Report 10967317 (Version 3)
Quarter: 2015Q3

REPORT INFORMATION
  Report Type: Report from Study
  Country: US (occurrence: US)
  Receive Date: 20150330
  Receipt Date: 20150821
  Transmission Date: 20151125
  Serious: Yes (Other)
  Sender: FDA-Public Use
  Company Number: US-SANOFI-AVENTIS-2013SA085363

PATIENT
  Age: 54 Year
  Sex: Female
  Weight: 53 kg

DRUGS (21)
  1. VESICARE [Concomitant]
     Active Substance: SOLIFENACIN SUCCINATE
     Indication: MULTIPLE SCLEROSIS
     Route: 065
  2. MODAFINIL. [Concomitant]
     Active Substance: MODAFINIL
     Indication: MULTIPLE SCLEROSIS
     Dosage: DPSE- 200 MG ONE FOURTH TABLET
     Route: 065
  3. SUMATRIPTAN. [Concomitant]
     Active Substance: SUMATRIPTAN
     Route: 048
  4. KETOCONAZOLE. [Concomitant]
     Active Substance: KETOCONAZOLE
     Indication: RASH
     Route: 061
  5. CALCIUM WITH VITAMIN D [Concomitant]
     Active Substance: CALCIUM\VITAMIN D
     Dosage: 500MG/200 UNITS
     Route: 048
  6. FISH OIL [Concomitant]
     Active Substance: FISH OIL
     Route: 048
  7. PANTHENOL/RETINOL/THIAMINE HYDROCHLORIDE/ASCORBIC ACID/ERGOCALCIFEROL/FOLIC ACID/RIBOFLAVIN/NICOTINA [Concomitant]
     Route: 048
  8. AUBAGIO [Suspect]
     Active Substance: TERIFLUNOMIDE
     Indication: MULTIPLE SCLEROSIS
     Route: 048
     Dates: start: 2015
  9. AMBIEN [Concomitant]
     Active Substance: ZOLPIDEM TARTRATE
     Indication: INSOMNIA
     Route: 065
  10. OXYCODONE/APAP [Concomitant]
     Active Substance: ACETAMINOPHEN\OXYCODONE HYDROCHLORIDE
     Dosage: DOSE- 7.5 MG /500 MG , 4 TIMES A DAY OR AS NEDDED
     Route: 048
  11. ALL OTHER THERAPEUTIC PRODUCTS [Concomitant]
     Active Substance: UNSPECIFIED INGREDIENT
     Route: 048
  12. AUBAGIO [Suspect]
     Active Substance: TERIFLUNOMIDE
     Indication: MULTIPLE SCLEROSIS
     Route: 048
     Dates: start: 20130812
  13. AUBAGIO [Suspect]
     Active Substance: TERIFLUNOMIDE
     Indication: MULTIPLE SCLEROSIS
     Route: 048
  14. FLOVENT [Concomitant]
     Active Substance: FLUTICASONE PROPIONATE
     Route: 055
  15. REBIF [Concomitant]
     Active Substance: INTERFERON BETA-1A
     Indication: MULTIPLE SCLEROSIS
     Dates: start: 20110301, end: 20130728
  16. PREMARIN [Concomitant]
     Active Substance: ESTROGENS, CONJUGATED
     Indication: DRY SKIN
     Route: 065
  17. IBUPROFEN. [Concomitant]
     Active Substance: IBUPROFEN
     Route: 048
  18. VITAMIN D [Concomitant]
     Active Substance: CHOLECALCIFEROL
     Dosage: DOSE:400 UNIT(S)
     Route: 048
  19. VITAMIN E [Concomitant]
     Active Substance: .ALPHA.-TOCOPHEROL
     Dosage: DOSE:400 UNIT(S)
     Route: 048
  20. SIMVASTATIN. [Concomitant]
     Active Substance: SIMVASTATIN
     Indication: BLOOD CHOLESTEROL
     Route: 065
  21. TRIAMCINOLONE ACETONIDE. [Concomitant]
     Active Substance: TRIAMCINOLONE ACETONIDE
     Dosage: 0.1 %
     Route: 061

REACTIONS (21)
  - Haemorrhage [Unknown]
  - Hypoaesthesia [Unknown]
  - Constipation [Not Recovered/Not Resolved]
  - Nausea [Recovered/Resolved]
  - Alopecia [Recovering/Resolving]
  - Balance disorder [Unknown]
  - Paraesthesia [Unknown]
  - Alopecia [Not Recovered/Not Resolved]
  - Malaise [Recovered/Resolved]
  - Limb injury [Unknown]
  - Fatigue [Unknown]
  - Abdominal pain lower [Unknown]
  - Contusion [Unknown]
  - Paraesthesia [Recovered/Resolved]
  - Dysgraphia [Unknown]
  - Multiple sclerosis relapse [Unknown]
  - Sensory disturbance [Unknown]
  - Headache [Recovered/Resolved]
  - Hypoaesthesia [Recovered/Resolved]
  - Diarrhoea [Recovering/Resolving]
  - Fall [Unknown]

NARRATIVE: CASE EVENT DATE: 201308
